FAERS Safety Report 8492133-8 (Version None)
Quarter: 2012Q2

REPORT INFORMATION
  Report Type: 
  Country: None (occurrence: None)
  Receive Date: 20120618
  Receipt Date: 20120605
  Transmission Date: 20120825
  Serious: Yes (Hospitalization)
  Sender: FDA-Public Use
  Company Number: 2012030867

PATIENT
  Age: 26 Year
  Sex: Female

DRUGS (9)
  1. PRIVIGEN [Suspect]
     Indication: SUSAC'S SYNDROME
     Dosage: 60 G TOTAL, 60 GM X3, 60 G TOTAL
     Route: 042
     Dates: start: 20111229, end: 20111230
  2. PRIVIGEN [Suspect]
     Indication: SUSAC'S SYNDROME
     Dosage: 60 G TOTAL, 60 GM X3, 60 G TOTAL
     Route: 042
     Dates: start: 20111230
  3. VITAMIN D [Concomitant]
  4. ASPIRIN [Concomitant]
  5. RANITIDINE HYDROCHLORIDE [Concomitant]
  6. FOLIC ACID [Concomitant]
  7. ALENDRONATE SODIUM [Concomitant]
  8. PREDNISONE TAB [Concomitant]
  9. CALCIUM CARBONATE [Concomitant]

REACTIONS (5)
  - HAEMOLYSIS [None]
  - POLYCHROMASIA [None]
  - OFF LABEL USE [None]
  - RED BLOOD CELL SPHEROCYTES PRESENT [None]
  - ANAEMIA [None]
